FAERS Safety Report 10969687 (Version 1)
Quarter: 2015Q1

REPORT INFORMATION
  Report Type: Spontaneous
  Country: US (occurrence: US)
  Receive Date: 20150331
  Receipt Date: 20150331
  Transmission Date: 20150721
  Serious: No
  Sender: FDA-Public Use
  Company Number: US-B.I. PHARMACEUTICALS,INC./RIDGEFIELD-2015-BI-14775BP

PATIENT
  Age: 82 Year
  Sex: Female
  Weight: 58 kg

DRUGS (4)
  1. COMBIVENT [Suspect]
     Active Substance: ALBUTEROL SULFATE\IPRATROPIUM BROMIDE
     Indication: INTERSTITIAL LUNG DISEASE
     Dosage: DOSE PER AAPLICATION: 20 MCG / 100 MCG; DAILY DOSE: 20 MCG / 100 MCG
     Route: 055
     Dates: start: 20150318
  2. AMLODIPINE BENAZAPRIL [Concomitant]
     Indication: PRODUCT USED FOR UNKNOWN INDICATION
     Dosage: DOSE PER APPLICATION: 5 MG  / 10 MG; DAILY DOSE: 5 MG / 10 MG
     Route: 048
  3. ASPIRIN. [Concomitant]
     Active Substance: ASPIRIN
     Indication: PRODUCT USED FOR UNKNOWN INDICATION
     Dosage: 325 MG
     Route: 048
  4. NITROFURANTOIN. [Concomitant]
     Active Substance: NITROFURANTOIN
     Indication: CYSTITIS
     Route: 048

REACTIONS (3)
  - Off label use [Not Recovered/Not Resolved]
  - Dyspnoea [Not Recovered/Not Resolved]
  - Product quality issue [Not Recovered/Not Resolved]

NARRATIVE: CASE EVENT DATE: 20150318
